FAERS Safety Report 23502959 (Version 1)
Quarter: 2024Q1

REPORT INFORMATION
  Report Type: Spontaneous
  Country: US (occurrence: US)
  Receive Date: 20240208
  Receipt Date: 20240208
  Transmission Date: 20240409
  Serious: No
  Sender: FDA-Public Use
  Company Number: US-INTRA-CELLULAR THERAPIES, INC.-2023ICT01332

PATIENT
  Sex: Female

DRUGS (3)
  1. CAPLYTA [Suspect]
     Active Substance: LUMATEPERONE
     Indication: Bipolar disorder
     Dosage: 21 MG, 1X/DAY
     Route: 048
     Dates: start: 202303
  2. DILTIAZEM [Suspect]
     Active Substance: DILTIAZEM
     Dosage: 540 MG, 1X/DAY
     Dates: end: 2023
  3. DILTIAZEM [Suspect]
     Active Substance: DILTIAZEM
     Dosage: 240 MG, 1X/DAY
     Dates: start: 2023

REACTIONS (2)
  - Depression [Not Recovered/Not Resolved]
  - Drug metabolising enzyme increased [Not Recovered/Not Resolved]

NARRATIVE: CASE EVENT DATE: 20230101
